FAERS Safety Report 9360662 (Version 1)
Quarter: 2013Q2

REPORT INFORMATION
  Report Type: Spontaneous
  Country: US (occurrence: None)
  Receive Date: 20130620
  Receipt Date: 20130620
  Transmission Date: 20140414
  Serious: No
  Sender: FDA-Public Use
  Company Number: None

PATIENT
  Age: 72 Year
  Sex: Male
  Weight: 113.4 kg

DRUGS (2)
  1. ZYVOX [Suspect]
     Indication: CELLULITIS
     Route: 048
     Dates: start: 20130531, end: 20130614
  2. ZYVOX [Suspect]
     Indication: DRUG HYPERSENSITIVITY
     Route: 048
     Dates: start: 20130531, end: 20130614

REACTIONS (4)
  - Dry mouth [None]
  - Tongue dry [None]
  - Dysgeusia [None]
  - Chapped lips [None]
